FAERS Safety Report 9911728 (Version 2)
Quarter: 2014Q1

REPORT INFORMATION
  Report Type: Spontaneous
  Country: SE (occurrence: SE)
  Receive Date: 20140219
  Receipt Date: 20140219
  Transmission Date: 20141002
  Serious: Yes (Other)
  Sender: FDA-Public Use
  Company Number: SE-ABBVIE-13X-150-1068674-00

PATIENT
  Age: 64 Year
  Sex: Female

DRUGS (4)
  1. NEXIUM HP [Suspect]
     Indication: GASTRIC ULCER
     Dates: end: 20121121
  2. AMIMOX [Suspect]
     Indication: PRODUCT USED FOR UNKNOWN INDICATION
  3. ESOMEPRAZOL [Suspect]
     Indication: PRODUCT USED FOR UNKNOWN INDICATION
  4. SIMVASTATIN [Concomitant]
     Indication: PRODUCT USED FOR UNKNOWN INDICATION

REACTIONS (3)
  - Myositis [Unknown]
  - Rhabdomyolysis [Unknown]
  - Myositis [Unknown]
